FAERS Safety Report 4914017-1 (Version None)
Quarter: 2006Q1

REPORT INFORMATION
  Report Type: 
  Country: None (occurrence: None)
  Receive Date: 20060216
  Receipt Date: 20060127
  Transmission Date: 20060701
  Serious: Yes (Hospitalization)
  Sender: FDA-Public Use
  Company Number: JP-ROCHE-434564

PATIENT
  Age: 28 Year
  Sex: Female

DRUGS (4)
  1. TAMIFLU [Suspect]
     Indication: INFLUENZA
     Route: 048
     Dates: start: 20060127
  2. CRAVIT [Concomitant]
     Dosage: FORM REPORTED AS ORAL FORMULATION.
     Route: 048
     Dates: start: 20060127
  3. DECADRON SRC [Concomitant]
     Route: 041
     Dates: start: 20060127
  4. NEOPHYLLIN [Concomitant]
     Route: 041
     Dates: start: 20060127

REACTIONS (1)
  - ASTHMA [None]
